FAERS Safety Report 5047974-6 (Version None)
Quarter: 2006Q3

REPORT INFORMATION
  Report Type: 
  Country: None (occurrence: None)
  Receive Date: 20060711
  Receipt Date: 20060131
  Transmission Date: 20061208
  Serious: Yes (Death, Other)
  Sender: FDA-Public Use
  Company Number: DK-BRISTOL-MYERS SQUIBB COMPANY-13414511

PATIENT
  Age: 51 Year
  Sex: Male

DRUGS (5)
  1. STAVUDINE [Suspect]
  2. DIDANOSINE [Suspect]
  3. LAMIVUDINE [Suspect]
  4. ABACAVIR [Suspect]
  5. TENOFOVIR [Suspect]

REACTIONS (5)
  - CHOLECYSTITIS ACUTE [None]
  - HEPATIC ENCEPHALOPATHY [None]
  - HEPATIC FAILURE [None]
  - HEPATITIS B VIRUS [None]
  - PANCREATITIS [None]
